FAERS Safety Report 8363463-5 (Version None)
Quarter: 2012Q2

REPORT INFORMATION
  Report Type: 
  Country: None (occurrence: None)
  Receive Date: 20120516
  Receipt Date: 20120509
  Transmission Date: 20120825
  Serious: Yes (Death, Life-Threatening, Hospitalization)
  Sender: FDA-Public Use
  Company Number: JP-JNJFOC-20111207465

PATIENT
  Sex: Female

DRUGS (9)
  1. TRAMADOL HYDROCHLORIDE/ACETAMINOPHEN [Suspect]
     Indication: PAIN
     Dosage: ONCE A DAY
     Route: 048
     Dates: start: 20111206, end: 20111210
  2. INDAPAMIDE [Concomitant]
     Indication: HYPERTENSION
     Route: 048
     Dates: start: 20110205, end: 20111211
  3. KERLONE [Concomitant]
     Indication: HYPERTENSION
     Route: 048
     Dates: start: 20000223, end: 20111211
  4. LASIX [Concomitant]
     Indication: CARDIAC FAILURE
     Route: 048
     Dates: start: 20090824, end: 20111211
  5. UNASYN [Concomitant]
     Route: 041
     Dates: start: 20111212, end: 20111213
  6. NORVASC [Concomitant]
     Indication: CARDIAC FAILURE
     Route: 048
     Dates: start: 20000906, end: 20111211
  7. TANATRIL [Concomitant]
     Indication: CARDIAC FAILURE
     Route: 048
     Dates: start: 20000223, end: 20111211
  8. NORVASC [Concomitant]
     Indication: HYPERTENSION
     Route: 048
     Dates: start: 20000906, end: 20111211
  9. KERLONE [Concomitant]
     Indication: CARDIAC FAILURE
     Route: 048
     Dates: start: 20000223, end: 20111211

REACTIONS (2)
  - MULTI-ORGAN FAILURE [None]
  - ILEUS [None]
